FAERS Safety Report 11225759 (Version 1)
Quarter: 2015Q2

REPORT INFORMATION
  Report Type: Spontaneous
  Country: US (occurrence: US)
  Receive Date: 20150629
  Receipt Date: 20150629
  Transmission Date: 20150821
  Serious: Yes (Hospitalization, Other)
  Sender: FDA-Public Use
  Company Number: US-TEVA-573956USA

PATIENT
  Sex: Female

DRUGS (4)
  1. SOLU-MEDROL [Suspect]
     Active Substance: METHYLPREDNISOLONE SODIUM SUCCINATE
     Dosage: FORM STRENGTH UNKNOWN
     Route: 065
  2. AVONEX [Suspect]
     Active Substance: INTERFERON BETA-1A
     Dosage: FORM STRENGTH UNKNOWN
     Route: 065
  3. COPAXONE [Suspect]
     Active Substance: GLATIRAMER ACETATE
     Indication: MULTIPLE SCLEROSIS
     Dosage: UNKNOWN FORM STRENGTH
     Route: 065
  4. TECFIDERA [Suspect]
     Active Substance: DIMETHYL FUMARATE
     Dosage: FORM STRENGTH UNKNOWN
     Route: 065

REACTIONS (8)
  - Pain in extremity [Unknown]
  - Injection site erythema [Unknown]
  - Hip arthroplasty [Unknown]
  - Left ventricular hypertrophy [Unknown]
  - Osteonecrosis [Unknown]
  - Muscle enzyme increased [Unknown]
  - Drug ineffective [Unknown]
  - Troponin increased [Unknown]

NARRATIVE: CASE EVENT DATE: 2011
